FAERS Safety Report 6105820-3 (Version None)
Quarter: 2009Q1

REPORT INFORMATION
  Report Type: 
  Country: None (occurrence: None)
  Receive Date: 20090227
  Receipt Date: 20090112
  Transmission Date: 20090719
  Serious: Yes (Other)
  Sender: FDA-Public Use
  Company Number: 183680USA

PATIENT
  Age: 67 Year
  Sex: Male

DRUGS (1)
  1. VENLAFAXINE HYDROCHLORIDE [Suspect]
     Indication: NERVOUSNESS
     Dosage: 37.5 MG (37.5 MG, 1 IN 1 D), ORAL
     Route: 048
     Dates: start: 20070101, end: 20080101

REACTIONS (4)
  - CONVULSION [None]
  - FEELING ABNORMAL [None]
  - HYPERSOMNIA [None]
  - TREMOR [None]
